FAERS Safety Report 12391746 (Version 1)
Quarter: 2016Q2

REPORT INFORMATION
  Report Type: Report from Study
  Country: US (occurrence: US)
  Receive Date: 20160522
  Receipt Date: 20160522
  Transmission Date: 20160815
  Serious: Yes (Hospitalization)
  Sender: FDA-Public Use
  Company Number: US-009507513-1605USA006486

PATIENT
  Age: 75 Year
  Sex: Male
  Weight: 122 kg

DRUGS (1)
  1. INTERFERON ALFA-2B [Suspect]
     Active Substance: INTERFERON ALFA-2B
     Indication: MALIGNANT MELANOMA
     Dosage: 50 MILLION UNITS, QD, M-F FOR 4 WEEKS
     Route: 042
     Dates: start: 20160324, end: 20160415

REACTIONS (2)
  - Fatigue [Unknown]
  - Skin infection [Unknown]

NARRATIVE: CASE EVENT DATE: 20160424
